FAERS Safety Report 10175758 (Version 1)
Quarter: 2014Q2

REPORT INFORMATION
  Report Type: Report from Study
  Country: US (occurrence: US)
  Receive Date: 20140516
  Receipt Date: 20140516
  Transmission Date: 20141212
  Serious: Yes (Hospitalization, Other)
  Sender: FDA-Public Use
  Company Number: US-US-EMD SERONO, INC.-7290742

PATIENT
  Age: 40 Year
  Sex: Female

DRUGS (2)
  1. REBIF [Suspect]
     Indication: MULTIPLE SCLEROSIS
     Route: 058
     Dates: start: 200807, end: 200911
  2. REBIF [Suspect]
     Route: 058
     Dates: start: 20100204

REACTIONS (5)
  - Invasive ductal breast carcinoma [Recovered/Resolved]
  - Device related infection [Recovering/Resolving]
  - Impaired healing [Recovered/Resolved]
  - Ovarian cyst [Recovered/Resolved]
  - Asthenia [Not Recovered/Not Resolved]
